FAERS Safety Report 8376002-X (Version None)
Quarter: 2012Q2

REPORT INFORMATION
  Report Type: 
  Country: None (occurrence: None)
  Receive Date: 20120522
  Receipt Date: 20120511
  Transmission Date: 20120825
  Serious: Yes (Other)
  Sender: FDA-Public Use
  Company Number: PHHY2012MX041027

PATIENT
  Age: 74 Year
  Sex: Male

DRUGS (3)
  1. EXFORGE [Suspect]
     Dosage: 2 DF (160/5 MG), DAILY
     Dates: start: 20120401
  2. TENORMIN [Concomitant]
     Indication: HYPERTENSION
     Dosage: 1 DF, DAILY
     Dates: start: 20100401
  3. EXFORGE [Suspect]
     Indication: HYPERTENSION
     Dosage: 1 DF (160/5 MG), DAILY
     Dates: start: 20100701

REACTIONS (5)
  - ARTHRITIS [None]
  - BLOOD PRESSURE INCREASED [None]
  - JOINT SWELLING [None]
  - INFARCTION [None]
  - OEDEMA PERIPHERAL [None]
